FAERS Safety Report 18333749 (Version 1)
Quarter: 2020Q4

REPORT INFORMATION
  Report Type: Report from Study
  Country: MX (occurrence: MX)
  Receive Date: 20201001
  Receipt Date: 20201001
  Transmission Date: 20210113
  Serious: Yes (Other)
  Sender: FDA-Public Use
  Company Number: MX-VIFOR (INTERNATIONAL) INC.-VIT-2020-09860

PATIENT
  Age: 88 Year
  Sex: Female

DRUGS (4)
  1. IRON [Concomitant]
     Active Substance: IRON
  2. MIRCERA [Suspect]
     Active Substance: METHOXY POLYETHYLENE GLYCOL-EPOETIN BETA
     Route: 058
     Dates: start: 20191010
  3. MIRCERA [Suspect]
     Active Substance: METHOXY POLYETHYLENE GLYCOL-EPOETIN BETA
     Indication: NEPHROGENIC ANAEMIA
     Dosage: 75 MICROG-0.3ML
     Route: 042
     Dates: start: 20191010
  4. INSULIN [Concomitant]
     Active Substance: INSULIN NOS

REACTIONS (5)
  - Dizziness [Unknown]
  - Malnutrition [Unknown]
  - Hyperhidrosis [Unknown]
  - Anaemia [Unknown]
  - Feeling cold [Unknown]
